FAERS Safety Report 8988563 (Version 5)
Quarter: 2022Q4

REPORT INFORMATION
  Report Type: Report from Study
  Country: US (occurrence: None)
  Receive Date: 20121228
  Receipt Date: 20221107
  Transmission Date: 20230112
  Serious: Yes (Hospitalization)
  Sender: FDA-Public Use
  Company Number: US-ROCHE-1154722

PATIENT
  Age: 78 Year
  Sex: Female
  Weight: 80.45 kg

DRUGS (17)
  1. BEVACIZUMAB [Suspect]
     Active Substance: BEVACIZUMAB
     Indication: Ovarian epithelial cancer
     Dosage: LAST ADMINISTERED DATE : 9/NOV/2012, RECEIVED 12 CYCLES
     Route: 042
     Dates: start: 20111230
  2. BEVACIZUMAB [Suspect]
     Active Substance: BEVACIZUMAB
     Indication: Malignant peritoneal neoplasm
  3. BEVACIZUMAB [Suspect]
     Active Substance: BEVACIZUMAB
     Indication: Fallopian tube cancer
  4. CARBOPLATIN [Suspect]
     Active Substance: CARBOPLATIN
     Indication: Ovarian epithelial cancer
     Dosage: AUC=6; LAST DOSE ADMINISTERED : 20/APR/2012
     Route: 042
     Dates: start: 20111230
  5. CARBOPLATIN [Suspect]
     Active Substance: CARBOPLATIN
     Indication: Fallopian tube cancer
  6. CARBOPLATIN [Suspect]
     Active Substance: CARBOPLATIN
     Indication: Malignant peritoneal neoplasm
  7. PACLITAXEL [Suspect]
     Active Substance: PACLITAXEL
     Indication: Ovarian epithelial cancer
     Dosage: LAST ADMINISTERED DATE : 20/APR/2012
     Route: 042
     Dates: start: 20111230
  8. PACLITAXEL [Suspect]
     Active Substance: PACLITAXEL
     Indication: Malignant peritoneal neoplasm
  9. PACLITAXEL [Suspect]
     Active Substance: PACLITAXEL
     Indication: Fallopian tube cancer
  10. ASPIRIN [Concomitant]
     Active Substance: ASPIRIN
  11. AMITRIPTYLINE [Concomitant]
     Active Substance: AMITRIPTYLINE
  12. LOVASTATIN [Concomitant]
     Active Substance: LOVASTATIN
  13. MAGNESIUM OXIDE [Concomitant]
     Active Substance: MAGNESIUM OXIDE
  14. NEURONTIN [GABAPENTIN] [Concomitant]
  15. OMEPRAZOLE [Concomitant]
     Active Substance: OMEPRAZOLE
     Dosage: DRUG REPORTED AS PRELOSEC
  16. TOPROL XL [Concomitant]
     Active Substance: METOPROLOL SUCCINATE
  17. TRIAMTERENE AND HYDROCHLOROTHIAZIDE [Concomitant]
     Active Substance: HYDROCHLOROTHIAZIDE\TRIAMTERENE
     Dosage: 37.5-25 MG

REACTIONS (6)
  - Small intestinal obstruction [Recovered/Resolved]
  - Fatigue [Recovered/Resolved]
  - Vomiting [Not Recovered/Not Resolved]
  - Nausea [Not Recovered/Not Resolved]
  - Abdominal distension [Recovered/Resolved]
  - Pain [Recovered/Resolved]

NARRATIVE: CASE EVENT DATE: 20120924
